FAERS Safety Report 8192006-4 (Version None)
Quarter: 2012Q1

REPORT INFORMATION
  Report Type: 
  Country: None (occurrence: None)
  Receive Date: 20120307
  Receipt Date: 20120302
  Transmission Date: 20120608
  Serious: Yes (Hospitalization, Other)
  Sender: FDA-Public Use
  Company Number: PHEH2011US08128

PATIENT
  Sex: Female
  Weight: 58.05 kg

DRUGS (2)
  1. AFINITOR [Suspect]
     Indication: NEUROENDOCRINE TUMOUR
     Dosage: 10 MG, UNK
     Route: 048
     Dates: start: 20111108
  2. SANDOSTATIN LAR [Suspect]
     Indication: METASTATIC CARCINOID TUMOUR

REACTIONS (15)
  - ASTHENIA [None]
  - ABDOMINAL PAIN [None]
  - NEOPLASM MALIGNANT [None]
  - ASCITES [None]
  - CONSTIPATION [None]
  - DIARRHOEA [None]
  - PLEURAL EFFUSION [None]
  - DEPRESSION [None]
  - BACK PAIN [None]
  - METASTASES TO LIVER [None]
  - NEOPLASM PROGRESSION [None]
  - NAUSEA [None]
  - VOMITING [None]
  - DECREASED APPETITE [None]
  - CHEST DISCOMFORT [None]
